FAERS Safety Report 4914344-8 (Version None)
Quarter: 2006Q1

REPORT INFORMATION
  Report Type: 
  Country: None (occurrence: None)
  Receive Date: 20060213
  Receipt Date: 20060201
  Transmission Date: 20060701
  Serious: Yes (Hospitalization)
  Sender: FDA-Public Use
  Company Number: US016788

PATIENT
  Age: 68 Year
  Sex: Male
  Weight: 90.7194 kg

DRUGS (8)
  1. ARSENIC TRIOXIDE [Suspect]
     Indication: MULTIPLE MYELOMA
     Dosage: 26 MG, UNK, INTRAVENOUS DRIP
     Route: 041
     Dates: start: 20050726, end: 20060126
  2. ASCORBIC ACID [Suspect]
     Indication: MULTIPLE MYELOMA
     Dosage: 1 GR QD; INTRAVENOUS DRIP
     Route: 041
     Dates: start: 20050726, end: 20060126
  3. MELPHALAN [Concomitant]
  4. COUMADIN [Concomitant]
  5. NORCO [Concomitant]
  6. ZOLOFT [Concomitant]
  7. NEURONTIN [Concomitant]
  8. AREDIA [Concomitant]

REACTIONS (3)
  - DEPRESSED LEVEL OF CONSCIOUSNESS [None]
  - PNEUMONITIS [None]
  - PYREXIA [None]
